FAERS Safety Report 20954598 (Version 5)
Quarter: 2025Q1

REPORT INFORMATION
  Report Type: Spontaneous
  Country: CA (occurrence: CA)
  Receive Date: 20220614
  Receipt Date: 20250102
  Transmission Date: 20250408
  Serious: Yes (Hospitalization)
  Sender: CHEPLAPHARM
  Company Number: CA-ROCHE-1438917

PATIENT
  Age: 52 Year
  Sex: Female

DRUGS (74)
  1. CLONAZEPAM [Suspect]
     Active Substance: CLONAZEPAM
     Indication: Hypomania
     Dosage: DAILY DOSE: 3 MILLIGRAM
     Route: 048
  2. QUETIAPINE [Suspect]
     Active Substance: QUETIAPINE
     Indication: Product used for unknown indication
     Dosage: DAILY DOSE: 50 MILLIGRAM
     Route: 048
  3. QUETIAPINE [Suspect]
     Active Substance: QUETIAPINE
     Indication: Psychotic disorder
     Dosage: DAILY DOSE: 50 MILLIGRAM
     Route: 048
  4. QUETIAPINE [Suspect]
     Active Substance: QUETIAPINE
     Indication: Product used for unknown indication
     Dosage: THERAPY DURATION: 24 DAYS?DAILY DOSE: 50 MILLIGRAM
     Route: 048
  5. QUETIAPINE [Suspect]
     Active Substance: QUETIAPINE
     Indication: Psychotic disorder
     Dosage: THERAPY DURATION: 24 DAYS?DAILY DOSE: 50 MILLIGRAM
     Route: 048
  6. OLANZAPINE [Suspect]
     Active Substance: OLANZAPINE
     Indication: Musculoskeletal stiffness
     Dosage: THERAPY DURATION: 555 DAYS?DAILY DOSE: 5 MILLIGRAM
     Route: 048
  7. OLANZAPINE [Suspect]
     Active Substance: OLANZAPINE
     Indication: Psychotic disorder
     Dosage: THERAPY DURATION: 555 DAYS?DAILY DOSE: 5 MILLIGRAM
     Route: 048
  8. OLANZAPINE [Suspect]
     Active Substance: OLANZAPINE
     Indication: Musculoskeletal stiffness
     Dosage: THERAPY DURATION: 555 DAYS?DAILY DOSE: 12.5 MILLIGRAM
     Route: 048
  9. OLANZAPINE [Suspect]
     Active Substance: OLANZAPINE
     Indication: Psychotic disorder
     Dosage: THERAPY DURATION: 555 DAYS?DAILY DOSE: 12.5 MILLIGRAM
     Route: 048
  10. DIAZEPAM [Suspect]
     Active Substance: DIAZEPAM
     Indication: Depression
     Dosage: DAILY DOSE: 1500 MILLIGRAM
     Route: 048
  11. DIAZEPAM [Suspect]
     Active Substance: DIAZEPAM
     Indication: Depression
  12. DIAZEPAM [Suspect]
     Active Substance: DIAZEPAM
     Indication: Depression
     Dosage: 250 MG 2 EVERY 1 DAY?DAILY DOSE: 500 MILLIGRAM
     Route: 048
  13. ACETAMINOPHEN [Suspect]
     Active Substance: ACETAMINOPHEN
     Indication: Pain in extremity
     Route: 048
  14. ACETAMINOPHEN [Suspect]
     Active Substance: ACETAMINOPHEN
     Indication: Product used for unknown indication
     Route: 048
  15. EPIVAL [Suspect]
     Active Substance: DIVALPROEX SODIUM
     Indication: Depression
  16. EPIVAL [Suspect]
     Active Substance: DIVALPROEX SODIUM
     Indication: Depression
     Dosage: THERAPY DURATION: 187 DAYS, 250 MG 2 EVERY 1 DAY?DAILY DOSE: 500 MILLIGRAM
     Route: 048
  17. EPIVAL [Suspect]
     Active Substance: DIVALPROEX SODIUM
     Indication: Depression
     Dosage: THERAPY DURATION: 187 DAYS?DAILY DOSE: 1500 MILLIGRAM
     Route: 048
  18. EPIVAL [Suspect]
     Active Substance: DIVALPROEX SODIUM
     Indication: Depression
     Dosage: DAILY DOSE: 250 MILLIGRAM
  19. PROCYCLIDINE HYDROCHLORIDE [Suspect]
     Active Substance: PROCYCLIDINE HYDROCHLORIDE
     Indication: Prophylaxis
     Dosage: THERAPY DURATION: 153 DAYS?DAILY DOSE: 2.5 MILLIGRAM
     Route: 048
  20. PROCYCLIDINE HYDROCHLORIDE [Suspect]
     Active Substance: PROCYCLIDINE HYDROCHLORIDE
     Indication: Product used for unknown indication
     Dosage: THERAPY DURATION: 153 DAYS?DAILY DOSE: 2.5 MILLIGRAM
     Route: 048
  21. PROCYCLIDINE HYDROCHLORIDE [Suspect]
     Active Substance: PROCYCLIDINE HYDROCHLORIDE
     Indication: Musculoskeletal stiffness
     Dosage: THERAPY DURATION: 153 DAYS?DAILY DOSE: 2.5 MILLIGRAM
     Route: 048
  22. RISPERIDONE [Suspect]
     Active Substance: RISPERIDONE
     Indication: Psychotic disorder
     Dosage: THERAPY DURATION: 47 DAYS?DAILY DOSE: 3 MILLIGRAM
     Route: 048
  23. TEGRETOL [Suspect]
     Active Substance: CARBAMAZEPINE
     Indication: Hypomania
     Dosage: 200 MG 2 EVERY 1 DAY THERAPY DURATION: 10 DAYS?DAILY DOSE: 400 MILLIGRAM
  24. TEGRETOL [Suspect]
     Active Substance: CARBAMAZEPINE
     Indication: Hypomania
     Dosage: 2 TIMES A DAY?DAILY DOSE: 400 MILLIGRAM
  25. TIPRANAVIR [Suspect]
     Active Substance: TIPRANAVIR
     Indication: HIV infection
     Dosage: THERAPY DURATION: 788 DAYS?DAILY DOSE: 500 MILLIGRAM
     Route: 048
  26. TIPRANAVIR [Suspect]
     Active Substance: TIPRANAVIR
     Indication: Product used for unknown indication
     Dosage: THERAPY DURATION: 788 DAYS?DAILY DOSE: 500 MILLIGRAM
     Route: 048
  27. TRAZODONE [Suspect]
     Active Substance: TRAZODONE HYDROCHLORIDE
     Indication: Depression
     Dosage: THERAPY DURATION: 45 DAYS?DAILY DOSE: 50 MILLIGRAM
     Route: 048
  28. TRAZODONE [Suspect]
     Active Substance: TRAZODONE HYDROCHLORIDE
     Indication: Depression
     Dosage: DAILY DOSE: 50 MILLIGRAM
     Route: 048
  29. APTIVUS [Suspect]
     Active Substance: TIPRANAVIR
     Indication: HIV infection
     Dosage: DAILY DOSE: 650 MILLIGRAM
     Route: 048
  30. ACLIDINIUM BROMIDE [Suspect]
     Active Substance: ACLIDINIUM BROMIDE
     Indication: Chronic obstructive pulmonary disease
  31. ACLIDINIUM BROMIDE\FORMOTEROL FUMARATE [Suspect]
     Active Substance: ACLIDINIUM BROMIDE\FORMOTEROL FUMARATE
  32. ATROVENT [Suspect]
     Active Substance: IPRATROPIUM BROMIDE
  33. BREO ELLIPTA [Suspect]
     Active Substance: FLUTICASONE FUROATE\VILANTEROL TRIFENATATE
     Route: 055
  34. BUDESONIDE\FORMOTEROL FUMARATE [Suspect]
     Active Substance: BUDESONIDE\FORMOTEROL FUMARATE
  35. CIPROFLOXACIN HYDROCHLORIDE [Suspect]
     Active Substance: CIPROFLOXACIN HYDROCHLORIDE
  36. GLYCOPYRROLATE [Suspect]
     Active Substance: GLYCOPYRROLATE
  37. MEPOLIZUMAB [Suspect]
     Active Substance: MEPOLIZUMAB
  38. MOXIFLOXACIN HYDROCHLORIDE [Suspect]
     Active Substance: MOXIFLOXACIN HYDROCHLORIDE
  39. NASONEX [Suspect]
     Active Substance: MOMETASONE FUROATE
     Route: 045
  40. OLODATEROL HYDROCHLORIDE\TIOTROPIUM BROMIDE MONOHYDRATE [Suspect]
     Active Substance: OLODATEROL HYDROCHLORIDE\TIOTROPIUM BROMIDE MONOHYDRATE
  41. OMNARIS [Suspect]
     Active Substance: CICLESONIDE
     Indication: Rhinitis allergic
  42. OMNARIS [Suspect]
     Active Substance: CICLESONIDE
     Indication: Seasonal allergy
  43. PREDNISONE [Suspect]
     Active Substance: PREDNISONE
  44. AZITHROMYCIN [Suspect]
     Active Substance: AZITHROMYCIN
  45. ALBUTEROL [Suspect]
     Active Substance: ALBUTEROL
     Indication: Psychotic disorder
  46. SINGULAIR [Suspect]
     Active Substance: MONTELUKAST SODIUM
  47. SPIRIVA [Suspect]
     Active Substance: TIOTROPIUM BROMIDE MONOHYDRATE
  48. GLYCOPYRRONIUM\INDACATEROL [Suspect]
     Active Substance: GLYCOPYRRONIUM\INDACATEROL
     Indication: Depression
  49. GLYCOPYRRONIUM\INDACATEROL [Suspect]
     Active Substance: GLYCOPYRRONIUM\INDACATEROL
     Indication: Depression
     Dosage: DAILY DOSE: 50 MILLIGRAM
     Route: 048
  50. GLYCOPYRRONIUM\INDACATEROL [Suspect]
     Active Substance: GLYCOPYRRONIUM\INDACATEROL
     Indication: Depression
     Dosage: DAILY DOSE: 50 MILLIGRAM
     Route: 048
  51. UMECLIDINIUM BROMIDE [Suspect]
     Active Substance: UMECLIDINIUM BROMIDE
  52. UMECLIDINIUM BROMIDE\VILANTEROL TRIFENATATE [Suspect]
     Active Substance: UMECLIDINIUM BROMIDE\VILANTEROL TRIFENATATE
  53. ZENHALE [Suspect]
     Active Substance: FORMOTEROL FUMARATE\MOMETASONE FUROATE
  54. ACETAMINOPHEN AND DIPHENHYDRAMINE HYDROCHLORIDE [Suspect]
     Active Substance: ACETAMINOPHEN\DIPHENHYDRAMINE HYDROCHLORIDE
  55. LAMIVUDINE [Concomitant]
     Active Substance: LAMIVUDINE
  56. BENADRYL [Concomitant]
     Active Substance: DIPHENHYDRAMINE HYDROCHLORIDE
     Indication: Product used for unknown indication
  57. BISACODYL [Concomitant]
     Active Substance: BISACODYL
  58. CALCIUM CARBONATE [Concomitant]
     Active Substance: CALCIUM CARBONATE
  59. CHLORAL HYDRATE [Concomitant]
     Active Substance: CHLORAL HYDRATE
  60. IMODIUM [Concomitant]
     Active Substance: LOPERAMIDE HYDROCHLORIDE
  61. KALETRA [Concomitant]
     Active Substance: LOPINAVIR\RITONAVIR
     Indication: Depression
  62. KALETRA [Concomitant]
     Active Substance: LOPINAVIR\RITONAVIR
     Indication: Depression
     Dosage: DAILY DOSE: 500 MILLIGRAM
     Route: 048
  63. KALETRA [Concomitant]
     Active Substance: LOPINAVIR\RITONAVIR
     Indication: Depression
     Dosage: DAILY DOSE: 1500 MILLIGRAM
     Route: 048
  64. KALETRA [Concomitant]
     Active Substance: LOPINAVIR\RITONAVIR
     Indication: Depression
     Dosage: DAILY DOSE: 250 MILLIGRAM
  65. NYSTATIN [Concomitant]
     Active Substance: NYSTATIN
  66. LACTULOSE [Concomitant]
     Active Substance: LACTULOSE
  67. ABACAVIR [Concomitant]
     Active Substance: ABACAVIR
     Indication: Product used for unknown indication
  68. ATOVAQUONE\PROGUANIL HYDROCHLORIDE [Concomitant]
     Active Substance: ATOVAQUONE\PROGUANIL HYDROCHLORIDE
     Indication: Product used for unknown indication
  69. LITHIUM [Concomitant]
     Active Substance: LITHIUM
     Indication: Product used for unknown indication
  70. SERTRALINE [Concomitant]
     Active Substance: SERTRALINE HYDROCHLORIDE
     Indication: Product used for unknown indication
  71. ENFUVIRTIDE [Concomitant]
     Active Substance: ENFUVIRTIDE
     Indication: Product used for unknown indication
  72. ACRIVASTINE [Concomitant]
     Active Substance: ACRIVASTINE
  73. MEGA VIM [Concomitant]
  74. ACETAMINOPHEN [Concomitant]
     Active Substance: ACETAMINOPHEN

REACTIONS (25)
  - Blood bilirubin increased [Recovered/Resolved]
  - Cholelithiasis [Unknown]
  - Condition aggravated [Recovered/Resolved]
  - Hepatic enzyme increased [Recovered/Resolved]
  - Hepatotoxicity [Recovered/Resolved]
  - Hypomania [Recovered/Resolved]
  - Jaundice cholestatic [Recovered/Resolved]
  - Nausea [Unknown]
  - Pneumonia [Unknown]
  - Psychotic disorder [Recovered/Resolved]
  - Schizophrenia [Unknown]
  - Vomiting [Unknown]
  - Asthma-chronic obstructive pulmonary disease overlap syndrome [Recovered/Resolved]
  - Bronchiectasis [Recovered/Resolved]
  - Cardiac murmur [Recovered/Resolved]
  - Chronic obstructive pulmonary disease [Recovered/Resolved]
  - Gastrooesophageal reflux disease [Recovered/Resolved]
  - Lung neoplasm malignant [Recovered/Resolved]
  - Nasal polyps [Recovered/Resolved]
  - Oedema peripheral [Recovered/Resolved]
  - Rhinitis allergic [Recovered/Resolved]
  - Sarcoidosis [Recovered/Resolved]
  - Total lung capacity increased [Recovered/Resolved]
  - Wheezing [Recovered/Resolved]
  - Off label use [Unknown]
